FAERS Safety Report 19611537 (Version 1)
Quarter: 2021Q3

REPORT INFORMATION
  Report Type: Spontaneous
  Country: US (occurrence: US)
  Receive Date: 20210727
  Receipt Date: 20210727
  Transmission Date: 20211014
  Serious: Yes (Death, Hospitalization, Other)
  Sender: FDA-Public Use
  Company Number: US-AUROBINDO-AUR-APL-2021-030520

PATIENT
  Age: 17 Year
  Sex: Female

DRUGS (1)
  1. ACETAMINOPHEN. [Suspect]
     Active Substance: ACETAMINOPHEN
     Indication: PRODUCT USED FOR UNKNOWN INDICATION
     Dosage: UNK
     Route: 048

REACTIONS (15)
  - Completed suicide [Fatal]
  - Sluggishness [Fatal]
  - Unresponsive to stimuli [Fatal]
  - Pain [Fatal]
  - Ocular icterus [Fatal]
  - Shock [Fatal]
  - Miosis [Fatal]
  - Jaundice [Fatal]
  - Sinus tachycardia [Fatal]
  - Nausea [Fatal]
  - Vomiting [Fatal]
  - Brain oedema [Fatal]
  - Toxicity to various agents [Fatal]
  - Intracranial pressure increased [Fatal]
  - Pupils unequal [Fatal]
